FAERS Safety Report 10034977 (Version 1)
Quarter: 2014Q1

REPORT INFORMATION
  Report Type: Spontaneous
  Country: US (occurrence: None)
  Receive Date: 20140321
  Receipt Date: 20140321
  Transmission Date: 20141002
  Serious: Yes (Death)
  Sender: FDA-Public Use
  Company Number: 2014HINOTH0241

PATIENT
  Age: 8 Day
  Sex: Female
  Weight: .8 kg

DRUGS (3)
  1. ABACAVIR [Suspect]
     Indication: ANTIRETROVIRAL THERAPY
     Dosage: DAY
     Route: 064
  2. LAMIVUDINE [Suspect]
     Dosage: PER DAY
     Route: 064
  3. KALETRA, ALUVIA, LPV/R (LOPINAVIR + RITONAVIR) [Concomitant]

REACTIONS (10)
  - Respiratory arrest [None]
  - Premature baby [None]
  - Acute hepatic failure [None]
  - Renal failure acute [None]
  - Maternal drugs affecting foetus [None]
  - Cardiomegaly [None]
  - Abdominal distension [None]
  - Intestinal perforation [None]
  - Pseudocyst [None]
  - Neural tube defect [None]
